FAERS Safety Report 5311590-9 (Version None)
Quarter: 2007Q2

REPORT INFORMATION
  Report Type: 
  Country: None (occurrence: None)
  Receive Date: 20070430
  Receipt Date: 20070417
  Transmission Date: 20071010
  Serious: Yes (Hospitalization)
  Sender: FDA-Public Use
  Company Number: FR-ROCHE-493550

PATIENT
  Age: 65 Year
  Sex: Male
  Weight: 75 kg

DRUGS (12)
  1. ROCEPHIN [Suspect]
     Indication: DRUG USE FOR UNKNOWN INDICATION
     Dosage: FORM: INJECTABLE SOLUTION. STRENGTH: 2 G/40 ML.
     Route: 042
     Dates: start: 20061224, end: 20070102
  2. ROCEPHIN [Suspect]
     Route: 042
     Dates: start: 20061218, end: 20061221
  3. FLAGYL [Suspect]
     Indication: DRUG USE FOR UNKNOWN INDICATION
     Route: 048
     Dates: start: 20061218, end: 20070102
  4. CIPROFLOXACIN HCL [Suspect]
     Indication: DRUG USE FOR UNKNOWN INDICATION
     Route: 048
     Dates: start: 20061218, end: 20070102
  5. DI ANTALVIC [Concomitant]
     Dosage: THREE DOSES DAILY.
     Route: 048
     Dates: start: 20061227
  6. COLCHIMAX [Concomitant]
     Dosage: TWO DOSES DAILY.
     Route: 048
     Dates: start: 20061227
  7. TENORMIN [Concomitant]
     Dosage: STRENGTH: 50. ONE DOSE DAILY TAKEN AS LONG-TREATMENT.
  8. CORDARONE [Concomitant]
     Dosage: STRENGTH: 200. ONE DOSE DAILY TAKEN AS LONG-TREATMENT.
  9. ALLOPURINOL [Concomitant]
     Dosage: STRENGTH: 100. ONE DOSE DAILY TAKEN AS LONG-TREATMENT.
  10. ESIDRIX [Concomitant]
     Dosage: STRENGTH: 12.5. ONE DOSE DAILY TAKEN AS LONG-TREATMENT.
  11. ATACAND [Concomitant]
     Dosage: STRENGTH: 8. ONE DOSE DAILY TAKEN AS LONG-TREATMENT.
  12. AUGMENTIN '125' [Concomitant]
     Dosage: STRENGTH: 2. TWO DOSES DAILY.
     Dates: end: 20061218

REACTIONS (1)
  - RENAL FAILURE ACUTE [None]
